FAERS Safety Report 6132540-1 (Version None)
Quarter: 2009Q1

REPORT INFORMATION
  Report Type: 
  Country: None (occurrence: None)
  Receive Date: 20090324
  Receipt Date: 20090309
  Transmission Date: 20090719
  Serious: Yes (Hospitalization)
  Sender: FDA-Public Use
  Company Number: 2009S1004377

PATIENT
  Age: 75 Year
  Sex: Female

DRUGS (8)
  1. OMEPRAZOLE [Suspect]
     Indication: PROPHYLAXIS AGAINST GASTROINTESTINAL ULCER
     Dosage: 20 MG; DAILY; ORAL
     Route: 048
     Dates: start: 20040101
  2. CLOBAZAM (CLOBAZAM) (10 MG) [Suspect]
     Indication: EPILEPSY
     Dosage: 10 MG; DAILY; ORAL
     Route: 048
     Dates: end: 20080907
  3. VALPROATE SODIUM [Suspect]
     Indication: EPILEPSY
     Dosage: 600 MG; TWICE A DAY; ORAL
     Route: 048
     Dates: start: 20080401
  4. BISOPROLOL [Concomitant]
  5. CALCIUM [Concomitant]
  6. FENTANYL-25 [Concomitant]
  7. FOSAMAX [Concomitant]
  8. FUROSEMIDE [Concomitant]

REACTIONS (3)
  - DRUG INTERACTION [None]
  - SOMNOLENCE [None]
  - TRANSAMINASES INCREASED [None]
